FAERS Safety Report 13543199 (Version 1)
Quarter: 2017Q2

REPORT INFORMATION
  Report Type: Not Available
  Country: US (occurrence: US)
  Receive Date: 20170514
  Receipt Date: 20170514
  Transmission Date: 20170830
  Serious: Yes (Other)
  Sender: FDA-Public Use
  Company Number: US-ANIPHARMA-2016-US-009042

PATIENT
  Age: 55 Year
  Sex: Female

DRUGS (3)
  1. PHENYLEPHRINE HYDROCHLORIDE. [Suspect]
     Active Substance: PHENYLEPHRINE HYDROCHLORIDE
     Route: 065
  2. AZITHROMYCIN ANHYDROUS. [Suspect]
     Active Substance: AZITHROMYCIN ANHYDROUS
     Route: 048
     Dates: start: 20160611, end: 20160612
  3. PROMETHAZINE HCL (NON-SPECIFIC) [Suspect]
     Active Substance: PROMETHAZINE HYDROCHLORIDE
     Route: 048
     Dates: start: 20160611, end: 20160612

REACTIONS (3)
  - Muscle spasms [Unknown]
  - Tremor [Unknown]
  - Seizure [Unknown]
